FAERS Safety Report 20697816 (Version 2)
Quarter: 2022Q2

REPORT INFORMATION
  Report Type: Report from Study
  Country: AR (occurrence: AR)
  Receive Date: 20220411
  Receipt Date: 20220511
  Transmission Date: 20220720
  Serious: Yes (Hospitalization)
  Sender: FDA-Public Use
  Company Number: AR-ABBVIE-22K-007-4352817-00

PATIENT
  Age: 44 Year
  Sex: Female

DRUGS (1)
  1. HUMIRA [Suspect]
     Active Substance: ADALIMUMAB
     Indication: Crohn^s disease
     Route: 058
     Dates: start: 20220106, end: 20220307

REACTIONS (7)
  - Seborrhoea [Recovering/Resolving]
  - Folliculitis [Recovering/Resolving]
  - Herpes virus infection [Recovering/Resolving]
  - Asthenia [Unknown]
  - Immunodeficiency [Unknown]
  - Stress [Recovering/Resolving]
  - COVID-19 [Recovered/Resolved]

NARRATIVE: CASE EVENT DATE: 20220117
